FAERS Safety Report 25548261 (Version 2)
Quarter: 2025Q3

REPORT INFORMATION
  Report Type: Spontaneous
  Country: JP (occurrence: JP)
  Receive Date: 20250714
  Receipt Date: 20250721
  Transmission Date: 20251021
  Serious: Yes (Hospitalization, Other)
  Sender: MACLEODS
  Company Number: JP-MLMSERVICE-20250627-PI558307-00221-1

PATIENT

DRUGS (2)
  1. METHIMAZOLE [Suspect]
     Active Substance: METHIMAZOLE
     Indication: Graves^ disease
     Dosage: TREATMENT WAS CONTINUED CAUTIOUSLY
     Route: 065
  2. METOPROLOL [Suspect]
     Active Substance: METOPROLOL
     Indication: Graves^ disease
     Dosage: TREATMENT WAS CONTINUED CAUTIOUSLY
     Route: 065

REACTIONS (2)
  - Thyrotoxic myopathy [Recovered/Resolved]
  - Condition aggravated [Recovered/Resolved]
